FAERS Safety Report 6771661-7 (Version None)
Quarter: 2010Q2

REPORT INFORMATION
  Report Type: 
  Country: None (occurrence: None)
  Receive Date: 20100611
  Receipt Date: 20100602
  Transmission Date: 20101027
  Serious: Yes (Hospitalization)
  Sender: FDA-Public Use
  Company Number: 2010EU002210

PATIENT
  Age: 46 Year
  Sex: Female

DRUGS (2)
  1. PROGRAF [Suspect]
     Indication: RENAL TRANSPLANT
     Dosage: 1 MG, BID
     Dates: start: 20050101
  2. CELLCEPT [Suspect]
     Indication: RENAL TRANSPLANT
     Dosage: 750 MG, BID,
     Dates: start: 20050101

REACTIONS (6)
  - BALANCE DISORDER [None]
  - CEREBELLAR ATAXIA [None]
  - COELIAC DISEASE [None]
  - METASTASES TO MENINGES [None]
  - NERVOUS SYSTEM DISORDER [None]
  - PYRAMIDAL TRACT SYNDROME [None]
